FAERS Safety Report 5589214-5 (Version None)
Quarter: 2008Q1

REPORT INFORMATION
  Report Type: 
  Country: None (occurrence: None)
  Receive Date: 20080114
  Receipt Date: 20071230
  Transmission Date: 20080703
  Serious: Yes (Other)
  Sender: FDA-Public Use
  Company Number: PHHO2007US20046

PATIENT
  Age: 68 Year
  Sex: Female
  Weight: 78.9 kg

DRUGS (4)
  1. FLUVASTATIN [Suspect]
     Indication: PROPHYLAXIS
     Dosage: DOUBLE-BLIND
     Route: 048
     Dates: start: 20071105
  2. RECLAST [Suspect]
     Indication: OSTEOPOROSIS POSTMENOPAUSAL
     Dosage: 5 MG, ONCE/SINGLE
     Route: 042
     Dates: start: 20071105
  3. VITAMIN D3 [Concomitant]
  4. CALCIUM [Concomitant]

REACTIONS (9)
  - ABDOMINAL PAIN [None]
  - ANOREXIA [None]
  - DEHYDRATION [None]
  - HYPOKALAEMIA [None]
  - MUSCULAR WEAKNESS [None]
  - NAUSEA [None]
  - PELVIC PAIN [None]
  - RASH [None]
  - URINARY TRACT INFECTION [None]
